FAERS Safety Report 9952427 (Version 1)
Quarter: 2014Q1

REPORT INFORMATION
  Report Type: Spontaneous
  Country: US (occurrence: US)
  Receive Date: 20140304
  Receipt Date: 20140304
  Transmission Date: 20141002
  Serious: Yes (Hospitalization)
  Sender: FDA-Public Use
  Company Number: US-ABBVIE-13P-163-1078596-00

PATIENT
  Age: 68 Year
  Sex: Male
  Weight: 79.9 kg

DRUGS (9)
  1. HUMIRA [Suspect]
     Indication: CROHN^S DISEASE
     Dates: start: 20120801, end: 20130102
  2. HUMIRA [Suspect]
     Dates: start: 20130304, end: 20130304
  3. HUMIRA [Suspect]
     Dates: start: 20130330, end: 20130330
  4. HUMIRA [Suspect]
     Dates: start: 20130412
  5. BENICAR [Concomitant]
     Indication: HYPERTENSION
  6. CLONIDINE [Concomitant]
     Indication: HYPERTENSION
  7. IMODIUM [Concomitant]
     Indication: DIARRHOEA
  8. ALLEGRA [Concomitant]
     Indication: HYPERSENSITIVITY
  9. AVODART [Concomitant]
     Indication: PROSTATOMEGALY

REACTIONS (12)
  - Pneumonia [Recovered/Resolved]
  - Fistula [Recovered/Resolved]
  - Fistula discharge [Not Recovered/Not Resolved]
  - Anxiety [Not Recovered/Not Resolved]
  - Choking sensation [Recovered/Resolved]
  - Joint swelling [Not Recovered/Not Resolved]
  - Arthralgia [Not Recovered/Not Resolved]
  - Cyst [Not Recovered/Not Resolved]
  - Joint crepitation [Not Recovered/Not Resolved]
  - Joint instability [Not Recovered/Not Resolved]
  - Arthralgia [Not Recovered/Not Resolved]
  - Thrombosis [Not Recovered/Not Resolved]
